FAERS Safety Report 4961263-7 (Version None)
Quarter: 2006Q1

REPORT INFORMATION
  Report Type: 
  Country: None (occurrence: None)
  Receive Date: 20060201
  Receipt Date: 20051020
  Transmission Date: 20060701
  Serious: No
  Sender: FDA-Public Use
  Company Number: 2005PV003696

PATIENT
  Age: 72 Year
  Sex: Male
  Weight: 107.9561 kg

DRUGS (11)
  1. BYETTA [Suspect]
     Indication: DIABETES MELLITUS NON-INSULIN-DEPENDENT
     Dosage: 5 MCG;BID;SC
     Route: 058
     Dates: start: 20051003
  2. GLUCOPHAGE [Concomitant]
  3. GLYBURIDE [Concomitant]
  4. TOPROL-XL [Concomitant]
  5. CELEBREX [Concomitant]
  6. VYTORIN [Concomitant]
  7. DIOVAN [Concomitant]
  8. LEVOTHROID [Concomitant]
  9. FOLIC ACID [Concomitant]
  10. PROTONIX [Concomitant]
  11. ASPIRIN [Concomitant]

REACTIONS (6)
  - BLOOD GLUCOSE DECREASED [None]
  - BLOOD GLUCOSE INCREASED [None]
  - DIZZINESS [None]
  - NERVOUSNESS [None]
  - TREMOR [None]
  - WEIGHT DECREASED [None]
